FAERS Safety Report 5690960-3 (Version None)
Quarter: 2008Q2

REPORT INFORMATION
  Report Type: 
  Country: None (occurrence: None)
  Receive Date: 20080401
  Receipt Date: 20080321
  Transmission Date: 20081010
  Serious: Yes (Other)
  Sender: FDA-Public Use
  Company Number: JP-SANOFI-SYNTHELABO-A01200801682

PATIENT
  Age: 55 Year
  Sex: Female
  Weight: 49 kg

DRUGS (6)
  1. ALEVIATIN [Concomitant]
     Indication: EPILEPSY
     Route: 048
     Dates: start: 20070414, end: 20080125
  2. ELPLAT [Suspect]
     Indication: COLON CANCER
     Dosage: 100 MG/BODY=69 MG/M2
     Route: 041
     Dates: start: 20070817, end: 20070817
  3. DEPAKENE [Concomitant]
     Indication: EPILEPSY
     Route: 048
     Dates: start: 20070414, end: 20080125
  4. LEUCOVORIN CALCIUM [Concomitant]
     Dosage: 235 MG/BODY=162.1 MG/M2
     Route: 042
     Dates: start: 20070817, end: 20070817
  5. FLUOROURACIL [Suspect]
     Dosage: 420 MG/BODY=289.7 MG/M2 IN BOLUS THEN 2800 MG/BODY=1931 MG/M2 AS INFUSION UNK
     Route: 042
     Dates: start: 20070817, end: 20070818
  6. PHENOBAL [Concomitant]
     Indication: EPILEPSY
     Route: 048
     Dates: start: 20070414, end: 20080125

REACTIONS (2)
  - LEUKOPENIA [None]
  - NEUTROPENIA [None]
